FAERS Safety Report 5814498-5 (Version None)
Quarter: 2008Q3

REPORT INFORMATION
  Report Type: 
  Country: None (occurrence: None)
  Receive Date: 20080718
  Receipt Date: 20080708
  Transmission Date: 20090109
  Serious: Yes (Hospitalization)
  Sender: FDA-Public Use
  Company Number: US-JNJFOC-20060801635

PATIENT
  Sex: Male

DRUGS (12)
  1. REMICADE [Suspect]
     Indication: RHEUMATOID ARTHRITIS
     Route: 042
  2. METHOTREXATE [Suspect]
     Indication: RHEUMATOID ARTHRITIS
     Route: 048
  3. CHLORTHALIDONE [Concomitant]
  4. DIFLUNISAL [Concomitant]
  5. GLIBENCLAMIDE [Concomitant]
  6. ALBUTEROL [Concomitant]
  7. OXYCODONE HCL [Concomitant]
  8. GLUCOVANCE [Concomitant]
  9. ACETAMINOPHEN [Concomitant]
  10. METFORMIN HYDROCHLORIDE [Concomitant]
  11. PROTAPHANE NPH [Concomitant]
  12. PROTAPHANE NPH [Concomitant]

REACTIONS (3)
  - CHOLELITHIASIS [None]
  - POST PROCEDURAL COMPLICATION [None]
  - POSTOPERATIVE WOUND INFECTION [None]
